FAERS Safety Report 23867452 (Version 1)
Quarter: 2024Q2

REPORT INFORMATION
  Report Type: Spontaneous
  Country: GB (occurrence: GB)
  Receive Date: 20240517
  Receipt Date: 20240517
  Transmission Date: 20240716
  Serious: Yes (Hospitalization)
  Sender: FDA-Public Use
  Company Number: GB-MYLANLABS-2024M1043626

PATIENT
  Sex: Female

DRUGS (8)
  1. ZOLEDRONIC ACID [Suspect]
     Active Substance: ZOLEDRONIC ACID
     Indication: Osteolysis
     Dosage: 0.0125?MG/KG, EVERY 6 MONTHS
     Route: 042
  2. ZOLEDRONIC ACID [Suspect]
     Active Substance: ZOLEDRONIC ACID
     Dosage: 0.025 MILLIGRAM/KILOGRAM, EVERY 6 MONTHS
     Route: 042
  3. DENOSUMAB [Suspect]
     Active Substance: DENOSUMAB
     Indication: Osteolysis
     Dosage: 40 MILLIGRAM EVERY 6 MONTHS RECEIVED 4 DOSES
     Route: 065
  4. DENOSUMAB [Suspect]
     Active Substance: DENOSUMAB
     Dosage: 60 MILLIGRAM, BIMONTHLY
     Route: 065
  5. DENOSUMAB [Suspect]
     Active Substance: DENOSUMAB
     Dosage: UNK, MONTHLY, DENOSUMAB DOSE WAS INCREASED TO MONTHLY INJECTIONS
     Route: 065
  6. CALCITONIN [Suspect]
     Active Substance: CALCITONIN
     Indication: Osteolysis
     Dosage: 200 INTERNATIONAL UNIT
     Route: 045
  7. CALCITONIN [Suspect]
     Active Substance: CALCITONIN
     Indication: Osteolysis
     Dosage: 50 INTERNATIONAL UNIT, Q3W
     Route: 058
  8. TERIPARATIDE [Concomitant]
     Active Substance: TERIPARATIDE
     Indication: Femur fracture
     Dosage: UNK
     Route: 065

REACTIONS (4)
  - Femur fracture [Unknown]
  - Humerus fracture [Unknown]
  - Drug ineffective for unapproved indication [Unknown]
  - Off label use [Unknown]
